FAERS Safety Report 14597228 (Version 1)
Quarter: 2018Q1

REPORT INFORMATION
  Report Type: Report from Study
  Country: None (occurrence: DE)
  Receive Date: 20180305
  Receipt Date: 20180305
  Transmission Date: 20180509
  Serious: Yes (Other)
  Sender: FDA-Public Use
  Company Number: DE-ABBVIE-18K-062-2269622-00

PATIENT
  Age: 31 Year
  Sex: Male
  Weight: 78 kg

DRUGS (2)
  1. HUMIRA [Suspect]
     Active Substance: ADALIMUMAB
     Indication: COLITIS ULCERATIVE
     Route: 058
     Dates: start: 20140602
  2. HUMIRA [Suspect]
     Active Substance: ADALIMUMAB
     Indication: COLITIS ULCERATIVE
     Route: 058

REACTIONS (15)
  - Tendonitis [Recovering/Resolving]
  - Pain [Not Recovered/Not Resolved]
  - Accident at work [Recovering/Resolving]
  - Arthritis [Not Recovered/Not Resolved]
  - Mobility decreased [Recovering/Resolving]
  - Ligament rupture [Recovering/Resolving]
  - Joint capsule rupture [Recovering/Resolving]
  - Nasopharyngitis [Not Recovered/Not Resolved]
  - Muscle strain [Not Recovered/Not Resolved]
  - Accident at work [Recovering/Resolving]
  - Musculoskeletal disorder [Recovering/Resolving]
  - Rhinitis [Not Recovered/Not Resolved]
  - Accident at work [Recovering/Resolving]
  - Tendon rupture [Recovering/Resolving]
  - Synovial cyst [Recovering/Resolving]

NARRATIVE: CASE EVENT DATE: 2015
